FAERS Safety Report 8793756 (Version 1)
Quarter: 2012Q4

REPORT INFORMATION
  Report Type: 
  Country: IT (occurrence: IT)
  Receive Date: 20120917
  Receipt Date: 20120917
  Transmission Date: 20130627
  Serious: Yes (Other)
  Sender: FDA-Public Use
  Company Number: PHHY2012IT079857

PATIENT

DRUGS (1)
  1. ZOLEDRONIC ACID [Suspect]
     Indication: METASTASES TO BONE
     Dosage: 4 mg, UNK
     Dates: start: 200311, end: 200604

REACTIONS (3)
  - Osteonecrosis of jaw [Unknown]
  - Pain [Unknown]
  - Inflammation [Unknown]
